FAERS Safety Report 8200955 (Version 6)
Quarter: 2012Q4

REPORT INFORMATION
  Report Type: 
  Country: GB (occurrence: GB)
  Receive Date: 20111026
  Receipt Date: 20121226
  Transmission Date: 20130627
  Serious: Yes (Hospitalization, Other)
  Sender: FDA-Public Use
  Company Number: GB-AMGEN-GBRSP2011054767

PATIENT
  Age: 79 Year
  Sex: Male
  Weight: 80 kg

DRUGS (6)
  1. NPLATE [Suspect]
     Indication: IDIOPATHIC THROMBOCYTOPENIC PURPURA
     Dosage: UNK UNK, qwk
     Route: 058
     Dates: start: 20110930
  2. HEPARIN [Suspect]
     Indication: DEEP VEIN THROMBOSIS
     Dosage: UNK unit, UNK
     Route: 058
     Dates: start: 20111006, end: 20111010
  3. AUGMENTIN [Concomitant]
     Indication: LOWER RESPIRATORY TRACT INFECTION
     Dosage: 625 mg, tid
     Route: 048
     Dates: start: 20111014, end: 20111021
  4. CORTICOSTEROIDS [Concomitant]
     Indication: IDIOPATHIC THROMBOCYTOPENIC PURPURA
     Dosage: UNK
     Dates: start: 20110729, end: 20111117
  5. RITUXIMAB [Concomitant]
     Indication: IDIOPATHIC THROMBOCYTOPENIC PURPURA
     Dosage: UNK
     Dates: start: 201109
  6. CYCLOPHOSPHAMIDE [Concomitant]
     Indication: IDIOPATHIC THROMBOCYTOPENIC PURPURA

REACTIONS (2)
  - Thrombocytopenia [Not Recovered/Not Resolved]
  - Pulmonary embolism [Unknown]
